FAERS Safety Report 21351896 (Version 1)
Quarter: 2022Q3

REPORT INFORMATION
  Report Type: Spontaneous
  Country: SG (occurrence: SG)
  Receive Date: 20220920
  Receipt Date: 20220920
  Transmission Date: 20221027
  Serious: Yes (Other)
  Sender: FDA-Public Use
  Company Number: SG-STRIDES ARCOLAB LIMITED-2022SP011791

PATIENT
  Age: 51 Year
  Sex: Female

DRUGS (6)
  1. TACROLIMUS [Interacting]
     Active Substance: TACROLIMUS
     Indication: Renal transplant
     Dosage: 0.5 MILLIGRAM, BID
     Route: 065
  2. PREDNISOLONE [Suspect]
     Active Substance: PREDNISOLONE
     Indication: Renal transplant
     Dosage: 10 MILLIGRAM PER DAY
     Route: 065
  3. PREDNISOLONE [Suspect]
     Active Substance: PREDNISOLONE
     Indication: Periostitis
  4. VORICONAZOLE [Interacting]
     Active Substance: VORICONAZOLE
     Indication: Central nervous system fungal infection
     Dosage: 500 MILLIGRAM PER DAY
     Route: 065
  5. VORICONAZOLE [Interacting]
     Active Substance: VORICONAZOLE
     Dosage: 100 MILLIGRAM, BID
     Route: 065
  6. CINACALCET [Concomitant]
     Active Substance: CINACALCET
     Indication: Product used for unknown indication
     Dosage: 12.5 MILLIGRAM PER DAY
     Route: 065

REACTIONS (4)
  - Periostitis [Recovered/Resolved]
  - Drug interaction [Unknown]
  - Fungal infection [Unknown]
  - Drug ineffective [Unknown]
